FAERS Safety Report 7157627-6 (Version None)
Quarter: 2010Q4

REPORT INFORMATION
  Report Type: 
  Country: None (occurrence: None)
  Receive Date: 20101214
  Receipt Date: 20100305
  Transmission Date: 20110411
  Serious: No
  Sender: FDA-Public Use
  Company Number: US-ASTRAZENECA-2010SE09823

PATIENT
  Age: 972 Month
  Sex: Female
  Weight: 88.5 kg

DRUGS (2)
  1. CRESTOR [Suspect]
     Indication: HYPERCHOLESTEROLAEMIA
     Route: 048
     Dates: start: 20091101, end: 20100101
  2. CRESTOR [Suspect]
     Route: 048

REACTIONS (3)
  - ERYTHEMA [None]
  - EXFOLIATIVE RASH [None]
  - SECRETION DISCHARGE [None]
